FAERS Safety Report 8915287 (Version 1)
Quarter: 2012Q4

REPORT INFORMATION
  Report Type: 
  Country: US (occurrence: US)
  Receive Date: 20121119
  Receipt Date: 20121119
  Transmission Date: 20130627
  Serious: No
  Sender: FDA-Public Use
  Company Number: US-PFIZER INC-2012288257

PATIENT
  Age: 32 Year
  Sex: Male

DRUGS (4)
  1. GEODON [Suspect]
     Indication: BIPOLAR DISORDER
     Dosage: 80mg one capsule in the noon and two capsules at night
     Route: 048
  2. GEODON [Suspect]
     Indication: SCHIZOPHRENIA
     Dosage: 80mg capsule one capsule in the noon and two capsules at night
     Route: 048
     Dates: start: 20121101, end: 20121113
  3. DEPAKOTE [Concomitant]
     Dosage: 1000 mg (two tablets of 500mg), 2x/day
  4. TERPIN HYDRATE [Concomitant]
     Dosage: 1 mg, 1x/day

REACTIONS (3)
  - Drug dose omission [Unknown]
  - Fatigue [Unknown]
  - Somnolence [Unknown]
